FAERS Safety Report 6179002-3 (Version None)
Quarter: 2009Q2

REPORT INFORMATION
  Report Type: 
  Country: None (occurrence: None)
  Receive Date: 20090505
  Receipt Date: 20090423
  Transmission Date: 20091009
  Serious: Yes (Other)
  Sender: FDA-Public Use
  Company Number: FR-JNJFOC-20090301245

PATIENT
  Age: 42 Year
  Sex: Male

DRUGS (1)
  1. INFLIXIMAB [Suspect]
     Indication: SARCOIDOSIS
     Dosage: RECEIVED 2 INFUSIONS
     Route: 042

REACTIONS (2)
  - ARTHRITIS BACTERIAL [None]
  - CRYPTOCOCCAL FUNGAEMIA [None]
